FAERS Safety Report 11945899 (Version 1)
Quarter: 2016Q1

REPORT INFORMATION
  Report Type: Report from Study
  Country: US (occurrence: US)
  Receive Date: 20160125
  Receipt Date: 20160125
  Transmission Date: 20160526
  Serious: Yes (Hospitalization, Other)
  Sender: FDA-Public Use
  Company Number: US-JNJFOC-20160117000

PATIENT
  Sex: Male

DRUGS (16)
  1. TESTOSTERONE. [Concomitant]
     Active Substance: TESTOSTERONE
  2. CEFTIN [Concomitant]
     Active Substance: CEFUROXIME AXETIL
  3. MOBIC [Concomitant]
     Active Substance: MELOXICAM
  4. RAPAFLO [Concomitant]
     Active Substance: SILODOSIN
  5. XANAX [Concomitant]
     Active Substance: ALPRAZOLAM
  6. IMBRUVICA [Suspect]
     Active Substance: IBRUTINIB
     Indication: CHRONIC LYMPHOCYTIC LEUKAEMIA
     Route: 048
     Dates: start: 20140819
  7. COMPAZINE [Concomitant]
     Active Substance: PROCHLORPERAZINE MALEATE
  8. HYDRALAZINE [Concomitant]
     Active Substance: HYDRALAZINE HYDROCHLORIDE
  9. FLOMAX [Concomitant]
     Active Substance: TAMSULOSIN HYDROCHLORIDE
  10. VITAMINS NOS [Concomitant]
     Active Substance: VITAMINS
  11. MINERALS [Concomitant]
     Active Substance: MINERALS
  12. ZOLOFT [Concomitant]
     Active Substance: SERTRALINE HYDROCHLORIDE
  13. ATARAX [Concomitant]
     Active Substance: HYDROXYZINE\HYDROXYZINE HYDROCHLORIDE
  14. CIALIS [Concomitant]
     Active Substance: TADALAFIL
  15. AMIODARONE [Concomitant]
     Active Substance: AMIODARONE
  16. TOPROL XL [Concomitant]
     Active Substance: METOPROLOL SUCCINATE

REACTIONS (5)
  - Dehydration [Unknown]
  - Blood pressure decreased [Recovered/Resolved]
  - Loss of consciousness [Recovered/Resolved]
  - Atrial fibrillation [Unknown]
  - Infection [Unknown]
